FAERS Safety Report 7294323-9 (Version None)
Quarter: 2011Q1

REPORT INFORMATION
  Report Type: 
  Country: None (occurrence: None)
  Receive Date: 20110215
  Receipt Date: 20110207
  Transmission Date: 20110831
  Serious: Yes (Other)
  Sender: FDA-Public Use
  Company Number: US-US-EMD SERONO, INC.-7041011

PATIENT
  Sex: Male

DRUGS (2)
  1. REBIF [Suspect]
     Indication: MULTIPLE SCLEROSIS
     Route: 058
     Dates: start: 20060101
  2. BACLOFEN [Concomitant]

REACTIONS (3)
  - THROMBOSIS [None]
  - NEPHROLITHIASIS [None]
  - INJECTION SITE ERYTHEMA [None]
